FAERS Safety Report 8155420-9 (Version None)
Quarter: 2012Q1

REPORT INFORMATION
  Report Type: 
  Country: None (occurrence: None)
  Receive Date: 20120203
  Receipt Date: 20120123
  Transmission Date: 20120608
  Serious: Yes (Life-Threatening)
  Sender: FDA-Public Use
  Company Number: 2012MA001345

PATIENT
  Age: 30 Year
  Sex: Female

DRUGS (1)
  1. VENLAFAXINE HCL [Suspect]
     Dosage: 5.5 G

REACTIONS (4)
  - SEROTONIN SYNDROME [None]
  - RHABDOMYOLYSIS [None]
  - OVERDOSE [None]
  - CARDIAC FAILURE ACUTE [None]
